FAERS Safety Report 4749854-X (Version None)
Quarter: 2005Q3

REPORT INFORMATION
  Report Type: 
  Country: None (occurrence: None)
  Receive Date: 20050822
  Receipt Date: 20050711
  Transmission Date: 20060218
  Serious: Yes (Other)
  Sender: FDA-Public Use
  Company Number: 200512069JP

PATIENT
  Age: 59 Year
  Sex: Male
  Weight: 59.9 kg

DRUGS (1)
  1. TAXOTERE [Suspect]
     Indication: PHARYNGEAL CANCER STAGE UNSPECIFIED
     Route: 041
     Dates: start: 20050523, end: 20050621

REACTIONS (5)
  - ANAPHYLACTIC REACTION [None]
  - DYSPNOEA [None]
  - GENERALISED ERYTHEMA [None]
  - HYPERHIDROSIS [None]
  - TACHYCARDIA [None]
